FAERS Safety Report 21621944 (Version 1)
Quarter: 2022Q4

REPORT INFORMATION
  Report Type: Spontaneous
  Country: CA (occurrence: CA)
  Receive Date: 20221121
  Receipt Date: 20221121
  Transmission Date: 20230113
  Serious: Yes (Hospitalization, Disabling, Other)
  Sender: FDA-Public Use
  Company Number: CA-ANIPHARMA-2019-CA-001103

PATIENT
  Age: 72 Year
  Sex: Male

DRUGS (21)
  1. BICALUTAMIDE [Suspect]
     Active Substance: BICALUTAMIDE
     Indication: Product used for unknown indication
     Dosage: 50 MG QD / UNK
     Route: 048
  2. FOLATE SODIUM [Suspect]
     Active Substance: FOLATE SODIUM
     Dosage: 5 MG DAILY / UNK
     Route: 065
  3. LANSOPRAZOLE [Suspect]
     Active Substance: LANSOPRAZOLE
     Dosage: 30 MG DAILY
     Route: 065
  4. METHOTREXATE [Suspect]
     Active Substance: METHOTREXATE
     Dosage: 7.5 MG UNK / 20 MG UNK / 25 MG UNK / 15 MG UNK / 15 MG UNK / 25 MG UNK / UNK / UNK / UNK / UNK /UNK
     Route: 065
  5. SODIUM BICARBONATE\SODIUM CHLORIDE [Suspect]
     Active Substance: SODIUM BICARBONATE\SODIUM CHLORIDE
     Dosage: UNK / UNK
     Route: 065
  6. BROMHEXINE\CLORPRENALINE\SULFAMETHOXAZOLE\TRIMETHOPRIM [Suspect]
     Active Substance: BROMHEXINE\CLORPRENALINE\SULFAMETHOXAZOLE\TRIMETHOPRIM
     Dosage: UNK / UNK
     Route: 065
  7. VENTOLIN [Suspect]
     Active Substance: ALBUTEROL SULFATE
     Dosage: UNK / DOSE TEXT: SALBUTAMOL
     Route: 065
  8. VITAMIN D NOS [Suspect]
     Active Substance: VITAMIN D NOS
     Dosage: UNK
     Route: 065
  9. PREDNISONE [Suspect]
     Active Substance: PREDNISONE
     Dosage: 5 MG DAILY / 10 MG DAILY / 7.5 MG DAILY / 2 MG DAILY / DOSE TEXT: UNKNOWN DOSE EVERYDAY / DOSE TEXT:
     Route: 065
  10. OMNARIS [Suspect]
     Active Substance: CICLESONIDE
     Dosage: 2 DF UNK / DOSE TEXT: CICLESONIDE / UNK / UNK
     Route: 045
  11. CALCIUM CARBONATE [Suspect]
     Active Substance: CALCIUM CARBONATE
     Route: 065
  12. SODIUM BICARBONATE, SODIUM CHLORIDE [Suspect]
     Active Substance: SODIUM BICARBONATE\SODIUM CHLORIDE
     Dosage: UNK
     Route: 065
  13. CALCIUM DISODIUM VERSENATE [Suspect]
     Active Substance: EDETATE CALCIUM DISODIUM
     Dosage: UNK / UNK / UNK / DOSE TEXT: SODIUM CALCIUM EDETATE
     Route: 065
  14. AZELASTINE HYDROCHLORIDE\FLUTICASONE PROPIONATE [Suspect]
     Active Substance: AZELASTINE HYDROCHLORIDE\FLUTICASONE PROPIONATE
     Route: 065
  15. ALBUTEROL [Suspect]
     Active Substance: ALBUTEROL
     Dosage: UNK
     Route: 065
  16. ZOLADEX [Suspect]
     Active Substance: GOSERELIN ACETATE
     Dosage: UNK / DOSE TEXT: GOSERELIN
     Route: 058
  17. RAMIPRIL [Suspect]
     Active Substance: RAMIPRIL
     Dosage: 10 MG DAILY / 10 MG DAILY
     Route: 048
  18. FOSAMAX [Suspect]
     Active Substance: ALENDRONATE SODIUM
     Dosage: 70 MG UNK / UNK / DOSE TEXT: ALENDRONATE SODIUM
     Route: 048
  19. CALCIUM [Suspect]
     Active Substance: CALCIUM
     Dosage: UNK
     Route: 065
  20. CYCLOPHOSPHAMIDE [Suspect]
     Active Substance: CYCLOPHOSPHAMIDE
     Dosage: 175 MG DAILY / 1200 MG UNK / UNK
     Route: 048
  21. ADVAIR HFA [Suspect]
     Active Substance: FLUTICASONE PROPIONATE\SALMETEROL XINAFOATE
     Dosage: 1 DF BID / 5 MG BID / DOSE TEXT: UNKNOWN DOSE TWO TIMES A DAY / DOSE TEXT: FLUTICASONE,
     Route: 065

REACTIONS (33)
  - Cardiac septal defect [Unknown]
  - Central nervous system mass [Unknown]
  - Chronic sinusitis [Unknown]
  - Eosinophilic granulomatosis with polyangiitis [Unknown]
  - Eosinophilic myocarditis [Unknown]
  - Eosinophilic pneumonia [Unknown]
  - Memory impairment [Unknown]
  - Nasal polyps [Unknown]
  - Obstructive airways disorder [Unknown]
  - Prostate cancer [Unknown]
  - Haematuria [Unknown]
  - Renal disorder [Unknown]
  - Respiratory symptom [Unknown]
  - Ventricular hypokinesia [Unknown]
  - Viral infection [Unknown]
  - Wall motion score index abnormal [Unknown]
  - Pneumonia [Unknown]
  - Microangiopathy [Unknown]
  - Condition aggravated [Unknown]
  - Atopy [Unknown]
  - Haemorrhage [Unknown]
  - Obesity [Unknown]
  - Lacrimation increased [Unknown]
  - Lymphopenia [Unknown]
  - Nodule [Unknown]
  - Productive cough [Unknown]
  - Respiratory tract infection [Unknown]
  - Hypertension [Unknown]
  - Confusional state [Unknown]
  - Eosinophil count increased [Unknown]
  - Asthma [Unknown]
  - Airway remodelling [Unknown]
  - Blood immunoglobulin E increased [Unknown]
